FAERS Safety Report 18516261 (Version 1)
Quarter: 2020Q4

REPORT INFORMATION
  Report Type: Spontaneous
  Country: US (occurrence: US)
  Receive Date: 20201117
  Receipt Date: 20201117
  Transmission Date: 20210114
  Serious: No
  Sender: FDA-Public Use
  Company Number: None

PATIENT
  Age: 69 Year

DRUGS (1)
  1. METHOTREXATE, 50MG/ML [Suspect]
     Active Substance: METHOTREXATE
     Indication: BREAST CANCER FEMALE
     Route: 058
     Dates: start: 20180416

REACTIONS (1)
  - Hospitalisation [None]

NARRATIVE: CASE EVENT DATE: 20201104
